FAERS Safety Report 9184032 (Version 1)
Quarter: 2013Q1

REPORT INFORMATION
  Report Type: Spontaneous
  Country: US (occurrence: US)
  Receive Date: 20130322
  Receipt Date: 20130322
  Transmission Date: 20140127
  Serious: Yes (Other)
  Sender: FDA-Public Use
  Company Number: US-BRISTOL-MYERS SQUIBB COMPANY-16710725

PATIENT
  Age: 40 Year
  Sex: Female
  Weight: 68.3 kg

DRUGS (1)
  1. ERBITUX [Suspect]
     Indication: COLON CANCER
     Dates: start: 201106

REACTIONS (2)
  - Malignant neoplasm progression [Unknown]
  - Ascites [Unknown]
